FAERS Safety Report 14629671 (Version 1)
Quarter: 2018Q1

REPORT INFORMATION
  Report Type: Spontaneous
  Country: FR (occurrence: FR)
  Receive Date: 20180313
  Receipt Date: 20180313
  Transmission Date: 20180509
  Serious: Yes (Other)
  Sender: FDA-Public Use
  Company Number: FR-MERCK KGAA-2043591

PATIENT
  Age: 55 Year
  Sex: Female

DRUGS (1)
  1. NOVOTHYROX [Suspect]
     Active Substance: LEVOTHYROXINE SODIUM
     Indication: HYPOTHYROIDISM

REACTIONS (23)
  - Fatigue [Recovering/Resolving]
  - Sense of oppression [Recovering/Resolving]
  - Depressed mood [Recovering/Resolving]
  - Mental disorder [Recovering/Resolving]
  - Middle insomnia [Recovering/Resolving]
  - Dizziness [Recovering/Resolving]
  - Asthenia [Recovering/Resolving]
  - Laboratory test abnormal [Recovering/Resolving]
  - Irritability [Recovering/Resolving]
  - Feeling abnormal [Recovering/Resolving]
  - Illness anxiety disorder [Recovering/Resolving]
  - Muscle spasms [Recovering/Resolving]
  - Headache [Recovering/Resolving]
  - Respiration abnormal [Recovering/Resolving]
  - Aggression [Recovering/Resolving]
  - Thyroxine free abnormal [Recovering/Resolving]
  - Anti-thyroid antibody positive [Recovering/Resolving]
  - Palpitations [Recovering/Resolving]
  - Anxiety [Recovering/Resolving]
  - Arrhythmia [Recovering/Resolving]
  - Crying [Recovering/Resolving]
  - Haematocrit increased [Recovering/Resolving]
  - Amnesia [Recovering/Resolving]

NARRATIVE: CASE EVENT DATE: 20170703
